FAERS Safety Report 4781586-4 (Version None)
Quarter: 2005Q3

REPORT INFORMATION
  Report Type: 
  Country: None (occurrence: None)
  Receive Date: 20050927
  Receipt Date: 20050916
  Transmission Date: 20060218
  Serious: Yes (Other)
  Sender: FDA-Public Use
  Company Number: 2005130029

PATIENT
  Age: 55 Year
  Sex: Male

DRUGS (2)
  1. ARTHROTEC [Suspect]
     Indication: BACK PAIN
     Dosage: 100 MG (50 MG, 2 IN 1 D), ORAL
     Route: 048
     Dates: start: 20050831, end: 20050831
  2. HYDROCHLOROTHIAZIDE (HYDROCHLORITHIAZIDE) [Concomitant]

REACTIONS (4)
  - BLOOD PRESSURE INCREASED [None]
  - CONFUSIONAL STATE [None]
  - DISORIENTATION [None]
  - GLOBAL AMNESIA [None]
